FAERS Safety Report 4707201-3 (Version None)
Quarter: 2005Q3

REPORT INFORMATION
  Report Type: 
  Country: None (occurrence: None)
  Receive Date: 20050706
  Receipt Date: 20050628
  Transmission Date: 20060218
  Serious: Yes (Death, Hospitalization, Other)
  Sender: FDA-Public Use
  Company Number: 200515410US

PATIENT
  Age: 76 Year
  Sex: Male

DRUGS (9)
  1. ARAVA [Suspect]
     Indication: RHEUMATOID ARTHRITIS
     Dosage: DOSE: UNK
  2. REMICADE [Suspect]
     Indication: RHEUMATOID ARTHRITIS
     Dates: start: 20050428, end: 20050428
  3. INDERAL [Concomitant]
  4. NAPROXEN [Concomitant]
     Dosage: DOSE: UNK
  5. FLOMAX [Concomitant]
     Dosage: DOSE: UNK
  6. TIAPROFENIC ACID [Concomitant]
     Dosage: DOSE: UNKNOWN
  7. INDOMETHACIN [Concomitant]
     Indication: RHEUMATOID ARTHRITIS
     Dosage: DOSE: 2 TABLETS
     Dates: start: 20050502
  8. OXYCET [Concomitant]
     Indication: RHEUMATOID ARTHRITIS
     Dosage: DOSE: 2 TABLETS
     Dates: start: 20050502
  9. CORTICOSTEROIDS [Concomitant]
     Dosage: DOSE: UNK

REACTIONS (19)
  - ANURIA [None]
  - BLOOD BILIRUBIN INCREASED [None]
  - BLOOD CREATININE INCREASED [None]
  - BLOOD SODIUM DECREASED [None]
  - BLOOD UREA INCREASED [None]
  - COLD SWEAT [None]
  - DEATH [None]
  - FATIGUE [None]
  - FIBRIN D DIMER INCREASED [None]
  - FIBRINOLYSIS INCREASED [None]
  - HAEMOGLOBIN DECREASED [None]
  - HYPERGLYCAEMIA [None]
  - HYPOTENSION [None]
  - PALLOR [None]
  - RESTLESSNESS [None]
  - RHONCHI [None]
  - SEPSIS [None]
  - THROMBOCYTOPENIA [None]
  - UNRESPONSIVE TO VERBAL STIMULI [None]
